FAERS Safety Report 15215809 (Version 1)
Quarter: 2018Q3

REPORT INFORMATION
  Report Type: Spontaneous
  Country: ES (occurrence: ES)
  Receive Date: 20180730
  Receipt Date: 20180730
  Transmission Date: 20181010
  Serious: Yes (Other)
  Sender: FDA-Public Use
  Company Number: ES-BAUSCH-BL-2018-020399

PATIENT
  Age: 57 Year
  Sex: Female

DRUGS (1)
  1. ZYCLARA [Suspect]
     Active Substance: IMIQUIMOD
     Indication: ACTINIC KERATOSIS
     Route: 061
     Dates: start: 201803, end: 201803

REACTIONS (1)
  - Ophthalmic herpes simplex [Unknown]

NARRATIVE: CASE EVENT DATE: 20180323
